FAERS Safety Report 5370265-0 (Version None)
Quarter: 2007Q2

REPORT INFORMATION
  Report Type: 
  Country: None (occurrence: None)
  Receive Date: 20070614
  Receipt Date: 20060713
  Transmission Date: 20071010
  Serious: Yes (Other)
  Sender: FDA-Public Use
  Company Number: 221235

PATIENT
  Age: 70 Year
  Sex: Female
  Weight: 78.2 kg

DRUGS (16)
  1. XENICAL [Suspect]
     Indication: OBESITY
     Dosage: 120 MG 3 PER DAY ORAL
     Route: 048
     Dates: start: 19990516
  2. XENICAL [Suspect]
     Indication: WEIGHT CONTROL
     Dosage: 120 MG 3 PER DAY ORAL
     Route: 048
     Dates: start: 19990516
  3. DILANTIN [Concomitant]
  4. CAPOTEN [Concomitant]
  5. CALAN [Concomitant]
  6. HUMULIN 70/30 (HUMAN INSULIN ISOPHANE SUSPENSION/INSULIN HUMAN) [Concomitant]
  7. AMARYL [Concomitant]
  8. FIORINAL [Concomitant]
  9. ZANTAC [Concomitant]
  10. VALIUM [Concomitant]
  11. REGLAN [Concomitant]
  12. EYE DROPS (OPHTHALMIC DRUG NOS) [Concomitant]
  13. ASPIRIN [Concomitant]
  14. TYLENOL (CAPLET) [Concomitant]
  15. MULTIVITAMIN [Concomitant]
  16. VITAMIN E [Concomitant]

REACTIONS (5)
  - FLATULENCE [None]
  - PNEUMONIA [None]
  - STEATORRHOEA [None]
  - WEIGHT INCREASED [None]
  - WEIGHT LOSS POOR [None]
